FAERS Safety Report 15121399 (Version 3)
Quarter: 2019Q3

REPORT INFORMATION
  Report Type: Spontaneous
  Country: US (occurrence: US)
  Receive Date: 20180709
  Receipt Date: 20190926
  Transmission Date: 20191004
  Serious: No
  Sender: FDA-Public Use
  Company Number: US-PFIZER INC-2018270703

PATIENT
  Age: 56 Year
  Sex: Female

DRUGS (1)
  1. XELJANZ XR [Suspect]
     Active Substance: TOFACITINIB CITRATE
     Indication: RHEUMATOID ARTHRITIS
     Dosage: 11 MG, 1X/DAY (1 TABLET BY MOUTH)
     Route: 048
     Dates: start: 20190607

REACTIONS (5)
  - Product dose omission [Unknown]
  - Cough [Unknown]
  - Nausea [Unknown]
  - Dizziness [Unknown]
  - Limb discomfort [Unknown]
